FAERS Safety Report 13501866 (Version 1)
Quarter: 2017Q2

REPORT INFORMATION
  Report Type: Spontaneous
  Country: CN (occurrence: CN)
  Receive Date: 20170502
  Receipt Date: 20170502
  Transmission Date: 20170830
  Serious: Yes (Hospitalization, Other)
  Sender: FDA-Public Use
  Company Number: CN-CIPLA LTD.-2017CN07705

PATIENT

DRUGS (10)
  1. PACLITAXEL. [Suspect]
     Active Substance: PACLITAXEL
     Indication: NEOPLASM MALIGNANT
     Dosage: 80 MG/M2, UNK
     Route: 042
  2. CARBOPLATIN. [Suspect]
     Active Substance: CARBOPLATIN
     Indication: NEOPLASM MALIGNANT
     Dosage: UNK
     Route: 033
  3. DOCETAXEL. [Suspect]
     Active Substance: DOCETAXEL
     Indication: MALIGNANT PERITONEAL NEOPLASM
     Dosage: 60 MG/M2, EVERY 3 WEEKS FOR SIX CYCLES
     Route: 033
  4. MITOMYCIN. [Suspect]
     Active Substance: MITOMYCIN
     Indication: NEOPLASM MALIGNANT
     Dosage: 30 MG, CONTINUOUSLY PERFUSED WITH 12,000 ML NORMAL SALINE AT 42 ?C IN 90 MIN
     Route: 034
  5. DOCETAXEL. [Suspect]
     Active Substance: DOCETAXEL
     Indication: NEOPLASM MALIGNANT
     Dosage: 80 MG/M2, UNK
     Route: 033
  6. OXALIPLATIN. [Suspect]
     Active Substance: OXALIPLATIN
     Indication: METASTASES TO LUNG
     Dosage: 50 MG, UNK
     Route: 034
  7. CARBOPLATIN. [Suspect]
     Active Substance: CARBOPLATIN
     Indication: MALIGNANT PERITONEAL NEOPLASM
     Dosage: AUC 6, EVERY 3 WEEKS FOR SIX CYCLES
     Route: 033
  8. CISPLATIN. [Suspect]
     Active Substance: CISPLATIN
     Indication: NEOPLASM MALIGNANT
     Dosage: 60 MG/M2, UNK, ON THE THIRD POST OPERATIVE DAY
     Route: 042
  9. CISPLATIN. [Suspect]
     Active Substance: CISPLATIN
     Dosage: UNK
     Route: 034
  10. CISPLATIN. [Suspect]
     Active Substance: CISPLATIN
     Dosage: UNK, CONTINUOUSLY PERFUSED WITH 12,000 ML NORMAL SALINE AT 42 ?C IN 90 MIN
     Route: 065

REACTIONS (8)
  - Dyspnoea [Unknown]
  - Gastrointestinal disorder [Not Recovered/Not Resolved]
  - Drug ineffective [Unknown]
  - Atelectasis [Unknown]
  - Disease recurrence [Unknown]
  - Malignant peritoneal neoplasm [Unknown]
  - Bone marrow failure [Not Recovered/Not Resolved]
  - Metastases to lung [Unknown]
